FAERS Safety Report 13343027 (Version 2)
Quarter: 2019Q2

REPORT INFORMATION
  Report Type: Spontaneous
  Country: IR (occurrence: IR)
  Receive Date: 20170316
  Receipt Date: 20190620
  Transmission Date: 20190711
  Serious: Yes (Hospitalization)
  Sender: FDA-Public Use
  Company Number: IR-INDIVIOR LIMITED-INDV-099659-2017

PATIENT
  Age: 20 Year
  Sex: Male

DRUGS (4)
  1. BUPRENORPHINE. [Suspect]
     Active Substance: BUPRENORPHINE
     Indication: PRODUCT USED FOR UNKNOWN INDICATION
     Dosage: 0.6 MG
     Route: 042
  2. METHADONE [Suspect]
     Active Substance: METHADONE HYDROCHLORIDE
     Indication: PRODUCT USED FOR UNKNOWN INDICATION
     Dosage: 30 ML (150 MG)
     Route: 048
  3. FLUOXETINE [Suspect]
     Active Substance: FLUOXETINE HYDROCHLORIDE
     Indication: PRODUCT USED FOR UNKNOWN INDICATION
     Dosage: 20 MG (TO TABLETS)
     Route: 065
  4. CLONAZEPAM. [Suspect]
     Active Substance: CLONAZEPAM
     Indication: PRODUCT USED FOR UNKNOWN INDICATION
     Dosage: 2 MG (10 TABLETS)
     Route: 065

REACTIONS (9)
  - Respiratory depression [Unknown]
  - Condition aggravated [Unknown]
  - Hypoxia [Unknown]
  - Drug abuse [Unknown]
  - Respiratory acidosis [Unknown]
  - Drug screen positive [Unknown]
  - Apnoea [Unknown]
  - Drug withdrawal syndrome [Unknown]
  - Product use issue [Unknown]
